FAERS Safety Report 5241098-0 (Version None)
Quarter: 2007Q1

REPORT INFORMATION
  Report Type: 
  Country: None (occurrence: None)
  Receive Date: 20070214
  Receipt Date: 20070214
  Transmission Date: 20070707
  Serious: No
  Sender: FDA-Public Use
  Company Number: None

PATIENT
  Sex: Female

DRUGS (3)
  1. FENTANYL [Suspect]
     Indication: PAIN
     Dosage: DISSOLVE LOZENGE IN MOUTH UP TO MAXIMUM OF 5 DAILY.
     Dates: start: 20070126
  2. FENTANYL TRANSDERM PATCH [Concomitant]
  3. DURAGESIC-100 [Concomitant]

REACTIONS (3)
  - INADEQUATE ANALGESIA [None]
  - INCORRECT DOSE ADMINISTERED [None]
  - NO THERAPEUTIC RESPONSE [None]
